FAERS Safety Report 5624455-X (Version None)
Quarter: 2008Q1

REPORT INFORMATION
  Report Type: 
  Country: None (occurrence: None)
  Receive Date: 20080213
  Receipt Date: 20080205
  Transmission Date: 20080703
  Serious: Yes (Death, Other)
  Sender: FDA-Public Use
  Company Number: US-JNJFOC-20080201485

PATIENT
  Age: 70 Year
  Sex: Male

DRUGS (1)
  1. REMICADE [Suspect]
     Indication: CROHN'S DISEASE
     Dosage: HAD 2 OR 3 INFUSIONS ON UNKNOWN DATES
     Route: 042

REACTIONS (4)
  - CHEST DISCOMFORT [None]
  - DEATH [None]
  - DIZZINESS [None]
  - DYSPNOEA [None]
